FAERS Safety Report 4715966-X (Version None)
Quarter: 2005Q3

REPORT INFORMATION
  Report Type: 
  Country: None (occurrence: None)
  Receive Date: 20050718
  Receipt Date: 20050311
  Transmission Date: 20060218
  Serious: Yes (Hospitalization, Disabling, Other)
  Sender: FDA-Public Use
  Company Number: US-MERCK-0503USA02569

PATIENT
  Age: 45 Year
  Sex: Female
  Weight: 100 kg

DRUGS (29)
  1. VIOXX [Suspect]
     Indication: BACK PAIN
     Route: 048
     Dates: start: 19990101, end: 20040930
  2. VIOXX [Suspect]
     Route: 048
  3. VIOXX [Suspect]
     Route: 048
  4. VIOXX [Suspect]
     Indication: NECK PAIN
     Route: 048
     Dates: start: 19990101, end: 20040930
  5. VIOXX [Suspect]
     Route: 048
  6. VIOXX [Suspect]
     Route: 048
  7. ASPIRIN [Concomitant]
     Indication: PAIN
     Route: 065
     Dates: start: 20040101
  8. ASPIRIN [Concomitant]
     Indication: MYALGIA
     Route: 065
     Dates: start: 20040101
  9. ATENOLOL [Concomitant]
     Indication: HYPERTENSION
     Route: 065
  10. HYTRIN [Concomitant]
     Indication: HYPERTENSION
     Route: 065
     Dates: start: 20020101
  11. PROVIGIL [Concomitant]
     Indication: NARCOLEPSY
     Route: 065
  12. COZAAR [Concomitant]
     Indication: HYPERTENSION
     Route: 048
     Dates: start: 20030101
  13. NORVASC [Concomitant]
     Indication: HYPERTENSION
     Route: 065
     Dates: start: 20030101
  14. LASIX [Concomitant]
     Indication: HYPERTENSION
     Route: 065
     Dates: start: 20030101
  15. POTASSIUM (UNSPECIFIED) [Concomitant]
     Indication: HYPERTENSION
     Route: 065
  16. ROBAXIN [Concomitant]
     Indication: BACK PAIN
     Route: 065
  17. ROBAXIN [Concomitant]
     Indication: NECK PAIN
     Route: 065
  18. ADVIL [Concomitant]
     Indication: PAIN
     Route: 065
     Dates: start: 19700101
  19. ADVIL [Concomitant]
     Indication: MYALGIA
     Route: 065
     Dates: start: 19700101
  20. MOTRIN [Concomitant]
     Indication: PAIN
     Route: 065
     Dates: start: 19700101
  21. MOTRIN [Concomitant]
     Indication: MYALGIA
     Route: 065
     Dates: start: 19700101
  22. ALEVE [Concomitant]
     Indication: PAIN
     Route: 065
     Dates: start: 19700101
  23. ALEVE [Concomitant]
     Indication: MYALGIA
     Route: 065
     Dates: start: 19700101
  24. TYLENOL [Concomitant]
     Indication: PAIN
     Route: 065
     Dates: start: 19700101
  25. TYLENOL [Concomitant]
     Indication: MYALGIA
     Route: 065
     Dates: start: 19700101
  26. ATIVAN [Concomitant]
     Route: 065
     Dates: start: 19980101, end: 20040101
  27. EFFEXOR [Concomitant]
     Indication: DEPRESSION
     Route: 065
     Dates: start: 20020101
  28. NAPROXEN [Concomitant]
     Route: 065
     Dates: start: 19700101
  29. TRICOR [Concomitant]
     Route: 065

REACTIONS (18)
  - ANAEMIA [None]
  - ATRIAL SEPTAL DEFECT [None]
  - BLOOD HOMOCYSTEINE INCREASED [None]
  - CEREBROVASCULAR ACCIDENT [None]
  - DEPRESSION [None]
  - DIARRHOEA [None]
  - DYSPEPSIA [None]
  - HEART RATE IRREGULAR [None]
  - HYPERLIPIDAEMIA [None]
  - HYPERTENSIVE CRISIS [None]
  - LACUNAR INFARCTION [None]
  - NEPHROLITHIASIS [None]
  - OPTIC NEUROPATHY [None]
  - PALPITATIONS [None]
  - PNEUMONIA [None]
  - TRANSIENT ISCHAEMIC ATTACK [None]
  - VIRAL INFECTION [None]
  - VITAMIN B12 DEFICIENCY [None]
